FAERS Safety Report 9799990 (Version 2)
Quarter: 2014Q1

REPORT INFORMATION
  Report Type: Spontaneous
  Country: US (occurrence: US)
  Receive Date: 20140106
  Receipt Date: 20140106
  Transmission Date: 20141002
  Serious: Yes (Hospitalization)
  Sender: FDA-Public Use
  Company Number: US-GILEAD-2010-0030331

PATIENT
  Age: 74 Year
  Sex: Male

DRUGS (18)
  1. LETAIRIS [Suspect]
     Indication: PULMONARY ARTERIAL HYPERTENSION
     Route: 048
     Dates: start: 20100615
  2. COUMADIN [Concomitant]
  3. ASPIRIN [Concomitant]
  4. PLAVIX [Concomitant]
  5. TEKTURNA HCT [Concomitant]
  6. CARDIZEM [Concomitant]
  7. COREG [Concomitant]
  8. ZESTRIL [Concomitant]
  9. FINACEA [Concomitant]
  10. ALLOPURINOL [Concomitant]
  11. AVODART [Concomitant]
  12. SYMBICORT [Concomitant]
  13. VENTOLIN HFA [Concomitant]
  14. LUMIGAN [Concomitant]
  15. TYLENOL ARTHRITIS [Concomitant]
  16. ZOCOR [Concomitant]
  17. CLINDAMYCIN [Concomitant]
  18. CITRACAL + D [Concomitant]

REACTIONS (1)
  - Haemoglobin abnormal [Recovered/Resolved]
